FAERS Safety Report 6265793-X (Version None)
Quarter: 2009Q3

REPORT INFORMATION
  Report Type: 
  Country: None (occurrence: None)
  Receive Date: 20090713
  Receipt Date: 20090701
  Transmission Date: 20100115
  Serious: Yes (Other)
  Sender: FDA-Public Use
  Company Number: A0718706A

PATIENT
  Age: 69 Year
  Sex: Male
  Weight: 109.1 kg

DRUGS (10)
  1. AVANDIA [Suspect]
     Indication: DIABETES MELLITUS
     Route: 048
     Dates: start: 19990101, end: 20070604
  2. AVANDAMET [Suspect]
     Indication: DIABETES MELLITUS
     Route: 048
     Dates: start: 19990101, end: 20070604
  3. AVANDARYL [Suspect]
     Indication: DIABETES MELLITUS
     Dates: start: 19990101, end: 20070604
  4. ZESTRIL [Concomitant]
  5. LISINOPRIL [Concomitant]
  6. ALBUTEROL [Concomitant]
  7. ASPIRIN [Concomitant]
  8. CLOPIDOGREL BISULFATE [Concomitant]
  9. RABEPRAZOLE SODIUM [Concomitant]
  10. PANTOPRAZOLE SODIUM [Concomitant]

REACTIONS (1)
  - MYOCARDIAL INFARCTION [None]
